FAERS Safety Report 5067635-7 (Version None)
Quarter: 2006Q3

REPORT INFORMATION
  Report Type: 
  Country: None (occurrence: None)
  Receive Date: 20060727
  Receipt Date: 20060720
  Transmission Date: 20061208
  Serious: Yes (Life-Threatening)
  Sender: FDA-Public Use
  Company Number: 2006-145689-NL

PATIENT
  Age: 51 Year
  Sex: Female

DRUGS (6)
  1. ROCURONIUM BROMIDE [Suspect]
     Indication: ANAESTHESIA
     Dosage: 40 MG ONCE INTRAVENOUS (NOS)
     Route: 042
     Dates: start: 20060311
  2. DEXAMETHASONE [Suspect]
     Dosage: 4 G ONCE INTRAVENOUS (NOS)
     Route: 042
     Dates: start: 20060311
  3. CEFTRIAXONE [Suspect]
     Indication: PREMEDICATION
     Dosage: 1 G ONCE INTRAVENOUS (NOS)
     Route: 042
     Dates: start: 20060311
  4. MIDAZOLAM HYDROCHLORIDE [Suspect]
     Indication: ANAESTHESIA
     Dosage: 1 MG ONCE INTRAVENOUS (NOS)
     Route: 042
     Dates: start: 20060311
  5. FENTANYL [Suspect]
     Indication: ANAESTHESIA
     Dosage: 75 UG ONCE INTRAVENOUS (NOS)
     Route: 042
     Dates: start: 20060311
  6. PROPOFOL [Suspect]
     Dosage: 120 MG ONCE INTRAVENOUS (NOS)
     Route: 042
     Dates: start: 20060311

REACTIONS (5)
  - ANAPHYLACTIC REACTION [None]
  - HYPOVENTILATION [None]
  - PALLOR [None]
  - PULSE ABSENT [None]
  - WHEEZING [None]
